FAERS Safety Report 10071018 (Version 3)
Quarter: 2014Q2

REPORT INFORMATION
  Report Type: Report from Study
  Country: AR (occurrence: AR)
  Receive Date: 20140410
  Receipt Date: 20140422
  Transmission Date: 20141212
  Serious: Yes (Hospitalization, Other)
  Sender: FDA-Public Use
  Company Number: PHHY2014AR042044

PATIENT
  Age: 84 Year
  Sex: Male

DRUGS (2)
  1. ONBREZ [Suspect]
     Indication: BRONCHIAL DISORDER
     Dosage: 1 DF, DAILY
     Route: 055
  2. ONBREZ [Suspect]
     Indication: CHRONIC OBSTRUCTIVE PULMONARY DISEASE

REACTIONS (4)
  - Respiratory failure [Unknown]
  - Pulmonary oedema [Unknown]
  - Oxygen saturation decreased [Unknown]
  - Cardiomegaly [Unknown]
